FAERS Safety Report 6753087-5 (Version None)
Quarter: 2010Q2

REPORT INFORMATION
  Report Type: 
  Country: None (occurrence: None)
  Receive Date: 20100603
  Receipt Date: 20100524
  Transmission Date: 20101027
  Serious: Yes (Hospitalization)
  Sender: FDA-Public Use
  Company Number: PHHY2010BR34215

PATIENT
  Sex: Female

DRUGS (1)
  1. DIOVAN [Suspect]
     Dosage: 160 MG, UNK
     Dates: start: 20100201

REACTIONS (3)
  - ABNORMAL SENSATION IN EYE [None]
  - BLOOD PRESSURE FLUCTUATION [None]
  - HYPERTENSION [None]
